FAERS Safety Report 15938014 (Version 1)
Quarter: 2019Q1

REPORT INFORMATION
  Report Type: Spontaneous
  Country: US (occurrence: US)
  Receive Date: 20190208
  Receipt Date: 20190208
  Transmission Date: 20190417
  Serious: Yes (Other)
  Sender: FDA-Public Use
  Company Number: US-ROCHE-2175309

PATIENT
  Age: 89 Year
  Sex: Male

DRUGS (7)
  1. CARBOPLATIN. [Concomitant]
     Active Substance: CARBOPLATIN
     Route: 065
     Dates: start: 20180531, end: 20180629
  2. XOLAIR [Suspect]
     Active Substance: OMALIZUMAB
     Indication: ASTHMA
     Route: 058
     Dates: start: 2009, end: 2018
  3. TAXOL [Concomitant]
     Active Substance: PACLITAXEL
     Route: 065
     Dates: start: 20180531, end: 20180629
  4. FLUTICASONE. [Concomitant]
     Active Substance: FLUTICASONE
     Route: 045
  5. RANITIDINE. [Concomitant]
     Active Substance: RANITIDINE
     Route: 048
  6. BUDESONIDE. [Concomitant]
     Active Substance: BUDESONIDE
     Indication: ASTHMA
     Route: 065
  7. VITRON-C [Concomitant]
     Active Substance: ASCORBIC ACID\IRON
     Dosage: 65-125 MG
     Route: 065

REACTIONS (4)
  - Oesophageal carcinoma [Unknown]
  - Pyrexia [Recovered/Resolved]
  - Pruritus [Recovered/Resolved]
  - Rash [Recovered/Resolved]

NARRATIVE: CASE EVENT DATE: 20180731
